FAERS Safety Report 8334912-3 (Version None)
Quarter: 2012Q2

REPORT INFORMATION
  Report Type: 
  Country: None (occurrence: None)
  Receive Date: 20120503
  Receipt Date: 20100302
  Transmission Date: 20120825
  Serious: No
  Sender: FDA-Public Use
  Company Number: US-TEVA-2010001206

PATIENT
  Sex: Female
  Weight: 63.56 kg

DRUGS (4)
  1. XYREM [Concomitant]
     Indication: NARCOLEPSY
     Dosage: 3.75 GRAM;
     Route: 048
  2. NUVIGIL [Suspect]
     Indication: NARCOLEPSY
     Dosage: 250 MILLIGRAM;
     Route: 048
     Dates: start: 20100101, end: 20100101
  3. NUVIGIL [Suspect]
     Dosage: 150 MILLIGRAM;
     Route: 048
     Dates: start: 20100101
  4. PROVIGIL [Suspect]
     Indication: NARCOLEPSY
     Dosage: 200 MILLIGRAM;
     Route: 048
     Dates: start: 20090501, end: 20100101

REACTIONS (8)
  - DYSARTHRIA [None]
  - DROOLING [None]
  - HEADACHE [None]
  - FEELING DRUNK [None]
  - AMNESIA [None]
  - GAIT DISTURBANCE [None]
  - IRRITABILITY [None]
  - NAUSEA [None]
